FAERS Safety Report 16320648 (Version 1)
Quarter: 2019Q2

REPORT INFORMATION
  Report Type: Spontaneous
  Country: US (occurrence: US)
  Receive Date: 20190410
  Receipt Date: 20190410
  Transmission Date: 20190711
  Serious: Yes (Life-Threatening, Hospitalization, Disabling)
  Sender: FDA-Public Use
  Company Number: None

PATIENT
  Age: 61 Year
  Sex: Female
  Weight: 92.99 kg

DRUGS (1)
  1. VALSARTAN 320MG TAB SOL [Suspect]
     Active Substance: VALSARTAN
     Indication: HYPERTENSION
     Route: 048
     Dates: start: 201310, end: 201806

REACTIONS (2)
  - Breast cancer [None]
  - Cataract [None]

NARRATIVE: CASE EVENT DATE: 20180115
